FAERS Safety Report 7413436-1 (Version None)
Quarter: 2011Q2

REPORT INFORMATION
  Report Type: 
  Country: None (occurrence: None)
  Receive Date: 20110413
  Receipt Date: 20110401
  Transmission Date: 20111010
  Serious: Yes (Hospitalization)
  Sender: FDA-Public Use
  Company Number: PHHY2011JP17123

PATIENT
  Sex: Male
  Weight: 49 kg

DRUGS (9)
  1. ALFAROL [Concomitant]
     Dosage: 0.25 UG
     Route: 048
  2. BLOPRESS [Concomitant]
     Dosage: 8 MG
     Route: 048
  3. FAMVIR [Suspect]
     Dosage: 500 MG, QD (ONE TABLET DAILY)
     Route: 048
     Dates: start: 20110226, end: 20110228
  4. LOXONIN [Concomitant]
     Dosage: 180 MG, UNK
     Route: 048
  5. MUCOSTA [Concomitant]
     Dosage: 200 MG
     Route: 048
  6. CALCIUM CARBONATE [Concomitant]
     Dosage: 3000 MG, UNK
     Route: 048
  7. FAMVIR [Suspect]
     Indication: HERPES ZOSTER
     Dosage: 500 MG ONE TIME DOSE, DAILY DOSE 1500 MG
     Route: 048
     Dates: start: 20110223, end: 20110223
  8. METHYCOBAL [Concomitant]
     Dosage: 3000 MCG
     Route: 048
  9. NORVASC [Concomitant]
     Dosage: 5 MG
     Route: 048

REACTIONS (4)
  - MYOCLONUS [None]
  - DRUG ADMINISTRATION ERROR [None]
  - REFLEXES ABNORMAL [None]
  - DRUG LEVEL INCREASED [None]
